FAERS Safety Report 17470891 (Version 1)
Quarter: 2020Q1

REPORT INFORMATION
  Report Type: Report from Study
  Country: None (occurrence: US)
  Receive Date: 20200228
  Receipt Date: 20200228
  Transmission Date: 20200409
  Serious: Yes (Other)
  Sender: FDA-Public Use
  Company Number: US-ABBVIE-20K-163-3294747-00

PATIENT
  Age: 57 Year
  Sex: Female

DRUGS (1)
  1. HUMIRA [Suspect]
     Active Substance: ADALIMUMAB
     Indication: COLITIS ULCERATIVE
     Route: 058
     Dates: end: 201911

REACTIONS (6)
  - Cerebrovascular accident [Unknown]
  - Cerebral thrombosis [Unknown]
  - Joint range of motion decreased [Unknown]
  - Hypotension [Unknown]
  - Intracardiac thrombus [Unknown]
  - Colitis [Unknown]

NARRATIVE: CASE EVENT DATE: 201908
